FAERS Safety Report 19060934 (Version 19)
Quarter: 2021Q3

REPORT INFORMATION
  Report Type: Report from Study
  Country: KR (occurrence: KR)
  Receive Date: 20210325
  Receipt Date: 20210907
  Transmission Date: 20211014
  Serious: Yes (Death, Hospitalization)
  Sender: FDA-Public Use
  Company Number: KR-EISAI MEDICAL RESEARCH-EC-2021-090023

PATIENT
  Age: 55 Year
  Sex: Male
  Weight: 62 kg

DRUGS (28)
  1. LENVATINIB [Suspect]
     Active Substance: LENVATINIB
     Indication: GASTRIC CANCER
     Dosage: STARTING DOSE: 20 MILLIGRAM; FLUCTUATED DOSAGE
     Route: 048
     Dates: start: 20210122, end: 20210301
  2. LENVATINIB [Suspect]
     Active Substance: LENVATINIB
     Dosage: STARTING DOSE: 10 MILLIGRAM, QD, FLUCTUATED DOSAGE
     Route: 048
     Dates: start: 20210406, end: 20210503
  3. PEMBROLIZUMAB. [Suspect]
     Active Substance: PEMBROLIZUMAB
     Indication: GASTRIC CANCER
     Route: 065
     Dates: start: 20210122, end: 20210210
  4. PEMBROLIZUMAB. [Suspect]
     Active Substance: PEMBROLIZUMAB
     Route: 065
     Dates: start: 20210302, end: 20210302
  5. PANTOLOC [Concomitant]
     Active Substance: PANTOPRAZOLE SODIUM
     Dates: start: 20201223
  6. METHIMAZOLE. [Concomitant]
     Active Substance: METHIMAZOLE
     Dates: start: 20201223
  7. TYLENOL 8HR [Concomitant]
     Active Substance: ACETAMINOPHEN
     Dates: start: 20201224
  8. LAMINA?G [Concomitant]
     Dates: start: 20201223
  9. FOIPAN [Concomitant]
     Active Substance: CAMOSTAT MESYLATE
     Dates: start: 20201223
  10. CRESTOR [Concomitant]
     Active Substance: ROSUVASTATIN CALCIUM
     Dates: start: 20201223
  11. PEMBROLIZUMAB. [Suspect]
     Active Substance: PEMBROLIZUMAB
     Route: 065
     Dates: start: 20210601, end: 20210621
  12. FEROBA U [Concomitant]
     Active Substance: FERROUS SULFATE
     Dates: start: 20201226
  13. TRAJENTA [Concomitant]
     Active Substance: LINAGLIPTIN
     Dates: start: 20210216
  14. LENVATINIB [Suspect]
     Active Substance: LENVATINIB
     Route: 048
     Dates: start: 20210601, end: 20210611
  15. KETOTOP EL [Concomitant]
     Dates: start: 20201223
  16. STILNOX [Concomitant]
     Active Substance: ZOLPIDEM TARTRATE
     Dates: start: 20201223
  17. INDENOL [Concomitant]
     Active Substance: PROPRANOLOL HYDROCHLORIDE
     Dates: start: 20201228
  18. NEURONTIN [Concomitant]
     Active Substance: GABAPENTIN
     Dates: start: 20201223
  19. ULISTIN [Concomitant]
     Active Substance: ULINASTATIN
     Route: 041
     Dates: start: 20201223
  20. URSA [Concomitant]
     Active Substance: URSODIOL
     Dates: start: 20201223
  21. PEMBROLIZUMAB. [Suspect]
     Active Substance: PEMBROLIZUMAB
     Route: 065
     Dates: start: 20210323, end: 20210413
  22. PEMBROLIZUMAB. [Suspect]
     Active Substance: PEMBROLIZUMAB
     Route: 065
     Dates: start: 20210504, end: 20210504
  23. SYNTHYROXINE [Concomitant]
     Active Substance: LEVOTHYROXINE SODIUM
     Dates: start: 20210216, end: 20210329
  24. ALBUMIN (HUMAN) [Concomitant]
     Active Substance: ALBUMIN HUMAN
     Route: 041
     Dates: start: 20210302, end: 20210302
  25. LENVATINIB [Suspect]
     Active Substance: LENVATINIB
     Route: 048
     Dates: start: 20210504, end: 20210515
  26. LENVATINIB [Suspect]
     Active Substance: LENVATINIB
     Route: 048
     Dates: start: 20210302, end: 20210311
  27. GLUPA [Concomitant]
     Active Substance: METFORMIN HYDROCHLORIDE
     Dates: start: 20201226
  28. GODEX [Concomitant]
     Dates: start: 20210210

REACTIONS (2)
  - Hepatic encephalopathy [Recovered/Resolved]
  - Diarrhoea [Recovered/Resolved]

NARRATIVE: CASE EVENT DATE: 20210312
